FAERS Safety Report 12278720 (Version 6)
Quarter: 2017Q1

REPORT INFORMATION
  Report Type: Report from Study
  Country: US (occurrence: US)
  Receive Date: 20160418
  Receipt Date: 20170131
  Transmission Date: 20170428
  Serious: Yes (Hospitalization)
  Sender: FDA-Public Use
  Company Number: US-ACTELION-A-US2016-134634

PATIENT
  Age: 39 Year
  Sex: Male

DRUGS (4)
  1. WARFARIN [Concomitant]
     Active Substance: WARFARIN
  2. OPSUMIT [Suspect]
     Active Substance: MACITENTAN
     Indication: PULMONARY ARTERIAL HYPERTENSION
     Dosage: 10 MG, QD
     Route: 048
     Dates: start: 20151027
  3. REMODULIN [Concomitant]
     Active Substance: TREPROSTINIL
  4. ADCIRCA [Concomitant]
     Active Substance: TADALAFIL

REACTIONS (14)
  - Intra-abdominal fluid collection [Unknown]
  - Vomiting [Unknown]
  - Bronchitis [Unknown]
  - Syncope [Unknown]
  - Dizziness [Unknown]
  - Thrombosis [Unknown]
  - Gastric disorder [Unknown]
  - Malaise [Unknown]
  - Dyspnoea [Unknown]
  - Heart rate increased [Unknown]
  - Abdominal pain upper [Unknown]
  - Platelet count decreased [Unknown]
  - Oedema [Unknown]
  - Nausea [Unknown]
